FAERS Safety Report 6434476-5 (Version None)
Quarter: 2009Q4

REPORT INFORMATION
  Report Type: 
  Country: None (occurrence: None)
  Receive Date: 20091110
  Receipt Date: 20091028
  Transmission Date: 20100525
  Serious: Yes (Hospitalization, Other)
  Sender: FDA-Public Use
  Company Number: FR-PFIZER INC-2008009179

PATIENT
  Age: 63 Year
  Sex: Female
  Weight: 62 kg

DRUGS (13)
  1. DOCETAXEL [Suspect]
     Indication: BREAST CANCER
     Dosage: 75 MG/M2, 122 MG DAILY, EVERY 21 DAYS
     Route: 042
     Dates: start: 20071218, end: 20080108
  2. SUNITINIB MALATE [Suspect]
     Indication: BREAST CANCER
     Dosage: 37.5 MG, FROM DAY 2 TI DAY 15, EVERY DAY
     Route: 048
     Dates: start: 20071219, end: 20080114
  3. MAPROTILINE [Concomitant]
     Route: 048
  4. PRAZEPAM [Concomitant]
     Route: 048
  5. MOPRAL [Concomitant]
     Route: 048
  6. TOPALGIC [Concomitant]
     Route: 048
     Dates: end: 20080119
  7. MYOLASTAN [Concomitant]
     Route: 048
  8. DAFALGAN [Concomitant]
     Route: 048
  9. SOLUPRED [Concomitant]
     Route: 048
     Dates: start: 20071130
  10. FORLAX [Concomitant]
     Route: 048
     Dates: start: 20071208
  11. PROPRANOLOL [Concomitant]
     Route: 048
  12. KYTRIL [Concomitant]
     Route: 048
     Dates: start: 20071218
  13. PRIMPERAN [Concomitant]
     Route: 048
     Dates: start: 20071218

REACTIONS (2)
  - GENERAL PHYSICAL HEALTH DETERIORATION [None]
  - PULMONARY EMBOLISM [None]
